FAERS Safety Report 4610730-4 (Version None)
Quarter: 2005Q2

REPORT INFORMATION
  Report Type: 
  Country: None (occurrence: None)
  Receive Date: 20050228
  Receipt Date: 20041230
  Transmission Date: 20051028
  Serious: Yes (Life-Threatening)
  Sender: FDA-Public Use
  Company Number: 211421

PATIENT
  Age: 13 Year
  Sex: Male
  Weight: 54.1 kg

DRUGS (3)
  1. NUTROPIN AQ [Suspect]
     Indication: GROWTH HORMONE DEFICIENCY
     Dosage: 1.5 MG, QD, SUBCUTANEOUS
     Route: 058
     Dates: start: 19971202, end: 20041102
  2. CORTEF [Concomitant]
  3. LEVOXYL [Concomitant]

REACTIONS (1)
  - INTRACRANIAL PRESSURE INCREASED [None]
